FAERS Safety Report 15590910 (Version 1)
Quarter: 2018Q4

REPORT INFORMATION
  Report Type: Spontaneous
  Country: US (occurrence: US)
  Receive Date: 20181107
  Receipt Date: 20181107
  Transmission Date: 20190205
  Serious: Yes (Hospitalization)
  Sender: FDA-Public Use
  Company Number: None

PATIENT
  Age: 34 Year
  Sex: Female

DRUGS (2)
  1. TUBERSOL [Suspect]
     Active Substance: TUBERCULIN PURIFIED PROTEIN DERIVATIVE
     Dates: start: 20180827
  2. CYCLAFEM [Concomitant]

REACTIONS (4)
  - Nervousness [None]
  - Unresponsive to stimuli [None]
  - Dizziness [None]
  - Seizure [None]

NARRATIVE: CASE EVENT DATE: 20180827
